FAERS Safety Report 7186739-6 (Version None)
Quarter: 2010Q4

REPORT INFORMATION
  Report Type: 
  Country: None (occurrence: None)
  Receive Date: 20101222
  Receipt Date: 20101220
  Transmission Date: 20110411
  Serious: Yes (Hospitalization, Other)
  Sender: FDA-Public Use
  Company Number: US-PFIZER INC-2010176105

PATIENT
  Sex: Female
  Weight: 79.365 kg

DRUGS (5)
  1. GEODON [Suspect]
     Indication: NERVOUSNESS
     Dosage: UNK
  2. CELEBREX [Suspect]
     Indication: ARTHRITIS
     Dosage: UNK
     Route: 048
  3. DETROL LA [Suspect]
     Indication: URINARY INCONTINENCE
     Dosage: UNK
     Route: 048
  4. LIPITOR [Suspect]
     Indication: BLOOD CHOLESTEROL INCREASED
     Dosage: UNK
     Route: 048
  5. DIOVAN [Concomitant]

REACTIONS (5)
  - ABDOMINAL DISCOMFORT [None]
  - ACCIDENT [None]
  - CERVICAL VERTEBRAL FRACTURE [None]
  - IMPAIRED DRIVING ABILITY [None]
  - SPINAL FRACTURE [None]
